FAERS Safety Report 7875052-7 (Version None)
Quarter: 2011Q4

REPORT INFORMATION
  Report Type: 
  Country: None (occurrence: None)
  Receive Date: 20111031
  Receipt Date: 20111024
  Transmission Date: 20120403
  Serious: Yes (Death, Hospitalization)
  Sender: FDA-Public Use
  Company Number: US-BRISTOL-MYERS SQUIBB COMPANY-16009391

PATIENT
  Age: 47 Year
  Sex: Female

DRUGS (8)
  1. MULTI-VITAMIN [Concomitant]
  2. COMPAZINE [Concomitant]
     Route: 048
  3. YERVOY [Suspect]
     Indication: MALIGNANT MELANOMA
     Dosage: THERAPY ON 13JUL11,20JUL11
     Route: 042
     Dates: start: 20110622
  4. ACYCLOVIR [Concomitant]
  5. DEXTROMETHORPHAN HYDROBROMIDE [Concomitant]
     Route: 048
  6. FISH OIL [Concomitant]
  7. DECADRON [Concomitant]
  8. LYRICA [Concomitant]

REACTIONS (2)
  - NEOPLASM MALIGNANT [None]
  - HERPES ZOSTER [None]
